FAERS Safety Report 7008053-1 (Version None)
Quarter: 2010Q3

REPORT INFORMATION
  Report Type: 
  Country: None (occurrence: None)
  Receive Date: 20100922
  Receipt Date: 20100910
  Transmission Date: 20110219
  Serious: Yes (Hospitalization)
  Sender: FDA-Public Use
  Company Number: US-ELI_LILLY_AND_COMPANY-US201008003137

PATIENT
  Sex: Female

DRUGS (19)
  1. FORTEO [Suspect]
     Indication: OSTEOPOROSIS
     Dosage: 20 UG, DAILY (1/D)
     Dates: end: 20100729
  2. PREDNISONE [Concomitant]
  3. LEVAQUIN [Concomitant]
  4. ANTI-HYPERTENSIVE AGENT [Concomitant]
  5. PREVACID [Concomitant]
  6. ADVAIR DISKUS 100/50 [Concomitant]
  7. AMITIZA [Concomitant]
  8. ASPIRIN [Concomitant]
  9. BENICAR [Concomitant]
  10. CALTRATE [Concomitant]
  11. CATAPRES /00171101/ [Concomitant]
  12. CELEBREX [Concomitant]
  13. CRESTOR [Concomitant]
  14. JUICE PLUS [Concomitant]
  15. THYROID [Concomitant]
  16. MIRALAX [Concomitant]
  17. DARVOCET [Concomitant]
  18. SINGULAIR [Concomitant]
  19. ZANTAC [Concomitant]

REACTIONS (3)
  - BACK PAIN [None]
  - CHEST PAIN [None]
  - NAUSEA [None]
